FAERS Safety Report 5878473-7 (Version None)
Quarter: 2008Q3

REPORT INFORMATION
  Report Type: 
  Country: None (occurrence: None)
  Receive Date: 20080910
  Receipt Date: 20080826
  Transmission Date: 20090109
  Serious: Yes (Other)
  Sender: FDA-Public Use
  Company Number: 230281M08USA

PATIENT
  Age: 43 Year
  Sex: Male

DRUGS (12)
  1. REBIF [Suspect]
     Indication: MULTIPLE SCLEROSIS
     Dosage: 44 MCG, 3 IN 1 WEEKS, SUBCUTANEOUS; 44 MCG, 3 N 1 WEEKS, SUBCUTANEOUS
     Route: 058
     Dates: start: 20070426, end: 20080101
  2. REBIF [Suspect]
     Indication: MULTIPLE SCLEROSIS
     Dosage: 44 MCG, 3 IN 1 WEEKS, SUBCUTANEOUS; 44 MCG, 3 N 1 WEEKS, SUBCUTANEOUS
     Route: 058
     Dates: start: 20080801
  3. OXYCONTIN [Concomitant]
  4. DIAZEPAM [Concomitant]
  5. BACLOFEN [Concomitant]
  6. NEURONTIN [Concomitant]
  7. REQUIP [Concomitant]
  8. ALLOPURINOL [Concomitant]
  9. PREDNISONE (PREDNISONE /00044701/) [Concomitant]
  10. PRILOSEC [Concomitant]
  11. HEPARIN (HEPARIN /00027701/) [Concomitant]
  12. FLEXERIL [Concomitant]

REACTIONS (5)
  - BLOOD CULTURE POSITIVE [None]
  - BLOOD DISORDER [None]
  - CULTURE URINE POSITIVE [None]
  - INFECTION [None]
  - INJECTION SITE INFECTION [None]
